FAERS Safety Report 5078439-3 (Version None)
Quarter: 2006Q3

REPORT INFORMATION
  Report Type: 
  Country: None (occurrence: None)
  Receive Date: 20060811
  Receipt Date: 20060329
  Transmission Date: 20061208
  Serious: Yes (Death)
  Sender: FDA-Public Use
  Company Number: IT-BRISTOL-MYERS SQUIBB COMPANY-13332242

PATIENT
  Age: 30 Year
  Sex: Male

DRUGS (7)
  1. ABILIFY [Suspect]
     Indication: SCHIZOPHRENIA, PARANOID TYPE
     Route: 048
     Dates: start: 20051001
  2. HALDOL [Concomitant]
     Indication: SCHIZOPHRENIA, PARANOID TYPE
     Dates: start: 20050301, end: 20060323
  3. EN [Concomitant]
     Route: 030
     Dates: end: 20060301
  4. XANAX [Concomitant]
     Dates: start: 20051212, end: 20060323
  5. HALOPERIDOL [Concomitant]
     Dosage: DOSE VALUE:  DOSE CHANGE TO 4 MG DAY ON 01-MAR-2006.
     Dates: start: 20060301, end: 20060323
  6. OLANZAPINE [Concomitant]
  7. ALPRAZOLAM [Concomitant]
     Indication: ANXIETY

REACTIONS (5)
  - ANXIETY [None]
  - COMPLETED SUICIDE [None]
  - DELUSION [None]
  - TREATMENT NONCOMPLIANCE [None]
  - WEIGHT DECREASED [None]
